FAERS Safety Report 13176050 (Version 1)
Quarter: 2017Q1

REPORT INFORMATION
  Report Type: Spontaneous
  Country: US (occurrence: US)
  Receive Date: 20170201
  Receipt Date: 20170201
  Transmission Date: 20170428
  Serious: No
  Sender: FDA-Public Use
  Company Number: US-PERRIGO-16US014542

PATIENT
  Age: 77 Year
  Sex: Female
  Weight: 42.63 kg

DRUGS (1)
  1. IBUPROFEN. [Suspect]
     Active Substance: IBUPROFEN
     Indication: MUSCULOSKELETAL CHEST PAIN
     Dosage: 600 MG, TID
     Route: 048
     Dates: start: 201602, end: 201603

REACTIONS (6)
  - Contusion [Not Recovered/Not Resolved]
  - Laboratory test abnormal [Not Recovered/Not Resolved]
  - Faeces discoloured [Recovered/Resolved]
  - Incorrect dose administered [Recovered/Resolved]
  - Incorrect drug administration duration [Recovered/Resolved]
  - Constipation [Recovered/Resolved]

NARRATIVE: CASE EVENT DATE: 201602
